FAERS Safety Report 4511845-1 (Version None)
Quarter: 2004Q4

REPORT INFORMATION
  Report Type: 
  Country: None (occurrence: None)
  Receive Date: 20041123
  Receipt Date: 20041110
  Transmission Date: 20050328
  Serious: Yes (Hospitalization)
  Sender: FDA-Public Use
  Company Number: 2004-BP-10092BP

PATIENT
  Sex: Male

DRUGS (6)
  1. MOBIC [Suspect]
     Indication: ARTHRITIS
     Dosage: 7.5 MG, PO
     Route: 048
     Dates: start: 20040608, end: 20040612
  2. MOBIC [Suspect]
     Indication: TENDON DISORDER
     Dosage: 7.5 MG, PO
     Route: 048
     Dates: start: 20040608, end: 20040612
  3. ALTACE [Concomitant]
  4. PROCARDIA [Concomitant]
  5. ACETYLSALICYLIC ACID SRT [Concomitant]
  6. TYLENOL WITH CODEINE (PANADEINE CO) [Concomitant]

REACTIONS (3)
  - CEREBROVASCULAR ACCIDENT [None]
  - DRUG INEFFECTIVE [None]
  - LACUNAR INFARCTION [None]
